FAERS Safety Report 5176919-3 (Version None)
Quarter: 2006Q4

REPORT INFORMATION
  Report Type: 
  Country: None (occurrence: None)
  Receive Date: 20061218
  Receipt Date: 20060731
  Transmission Date: 20070319
  Serious: Yes (Death, Hospitalization)
  Sender: FDA-Public Use
  Company Number: PHEH2006US09812

PATIENT
  Age: 65 Year
  Sex: Male

DRUGS (3)
  1. SANDOSTATIN LAR [Suspect]
     Dosage: 20 MG, UNK
  2. CHEMOTHERAPEUTICS,OTHER [Concomitant]
  3. SANDOSTATIN [Suspect]
     Dosage: UNK, UNK
     Route: 042

REACTIONS (3)
  - DEATH [None]
  - DEHYDRATION [None]
  - ELECTROLYTE IMBALANCE [None]
